FAERS Safety Report 6189601-0 (Version None)
Quarter: 2009Q2

REPORT INFORMATION
  Report Type: 
  Country: None (occurrence: None)
  Receive Date: 20090512
  Receipt Date: 20090512
  Transmission Date: 20091009
  Serious: Yes (Other)
  Sender: FDA-Public Use
  Company Number: None

PATIENT
  Age: 47 Year
  Sex: Male
  Weight: 121.8 kg

DRUGS (2)
  1. SUNITINIB 25MG PFIZER [Suspect]
     Indication: GLIOBLASTOMA
     Dosage: 25MG 28 DAYS Q 42 DAYS PO
     Route: 048
     Dates: start: 20090406, end: 20090503
  2. SUNITINIB 12.5MG PFIZER [Suspect]
     Indication: GLIOBLASTOMA
     Dosage: 12.5MG 28 DAYS Q 42 DAYS PO
     Route: 048
     Dates: start: 20090406, end: 20090503

REACTIONS (1)
  - ABSCESS [None]
